FAERS Safety Report 19609893 (Version 1)
Quarter: 2021Q3

REPORT INFORMATION
  Report Type: Spontaneous
  Country: US (occurrence: US)
  Receive Date: 20210723
  Receipt Date: 20210723
  Transmission Date: 20211014
  Serious: No
  Sender: FDA-Public Use
  Company Number: None

PATIENT
  Age: 24 Year
  Sex: Female

DRUGS (2)
  1. IV ADMIN SET 92 ^ D?A?F [Suspect]
     Active Substance: DEVICE
     Indication: MUCOPOLYSACCHARIDOSIS VI
     Route: 030
     Dates: start: 2021
  2. NAGLAZYME [Suspect]
     Active Substance: GALSULFASE
     Route: 042
     Dates: start: 2021

REACTIONS (2)
  - Incorrect dose administered [None]
  - Infusion site extravasation [None]

NARRATIVE: CASE EVENT DATE: 20210721
